FAERS Safety Report 19899634 (Version 1)
Quarter: 2021Q3

REPORT INFORMATION
  Report Type: Spontaneous
  Country: US (occurrence: US)
  Receive Date: 20210929
  Receipt Date: 20210929
  Transmission Date: 20211014
  Serious: No
  Sender: FDA-Public Use
  Company Number: None

PATIENT
  Sex: Female

DRUGS (1)
  1. VERZENIO [Suspect]
     Active Substance: ABEMACICLIB
     Indication: BREAST CANCER
     Dosage: ?          OTHER STRENGTH:SEE EVENT;OTHER DOSE:1 TABLET;?
     Route: 048
     Dates: start: 202102

REACTIONS (3)
  - Drug intolerance [None]
  - Cough [None]
  - Dyspnoea [None]
